FAERS Safety Report 20245210 (Version 2)
Quarter: 2022Q1

REPORT INFORMATION
  Report Type: Spontaneous
  Country: US (occurrence: US)
  Receive Date: 20211229
  Receipt Date: 20220223
  Transmission Date: 20220423
  Serious: No
  Sender: FDA-Public Use
  Company Number: US-GLENMARK PHARMACEUTICALS-2021GMK068752

PATIENT

DRUGS (1)
  1. TACROLIMUS [Suspect]
     Active Substance: TACROLIMUS
     Indication: Eczema
     Dosage: UNK, BID
     Route: 061
     Dates: start: 20211028

REACTIONS (3)
  - Rash [Not Recovered/Not Resolved]
  - Drug ineffective [Unknown]
  - Application site pain [Unknown]

NARRATIVE: CASE EVENT DATE: 20210101
